FAERS Safety Report 14103545 (Version 3)
Quarter: 2017Q4

REPORT INFORMATION
  Report Type: Report from Study
  Country: GB (occurrence: GB)
  Receive Date: 20171018
  Receipt Date: 20171102
  Transmission Date: 20180321
  Serious: Yes (Hospitalization)
  Sender: FDA-Public Use
  Company Number: GB-JNJFOC-20171014951

PATIENT
  Age: 60 Year
  Sex: Male
  Weight: 99 kg

DRUGS (11)
  1. LISINOPRIL. [Concomitant]
     Active Substance: LISINOPRIL
     Route: 065
     Dates: start: 20090301
  2. GLICLAZIDE [Concomitant]
     Active Substance: GLICLAZIDE
     Route: 065
     Dates: start: 20150124
  3. STELARA [Suspect]
     Active Substance: USTEKINUMAB
     Indication: PSORIASIS
     Route: 058
     Dates: start: 20140210
  4. GABAPENTIN. [Concomitant]
     Active Substance: GABAPENTIN
     Route: 065
     Dates: start: 20160511
  5. ALOGLIPTIN. [Concomitant]
     Active Substance: ALOGLIPTIN
     Route: 065
     Dates: start: 20160624
  6. CITALOPRAM [Concomitant]
     Active Substance: CITALOPRAM HYDROBROMIDE
     Route: 065
     Dates: start: 20160603
  7. METFORMIN [Concomitant]
     Active Substance: METFORMIN HYDROCHLORIDE
     Route: 065
     Dates: start: 20071201
  8. ATORVASTATIN [Concomitant]
     Active Substance: ATORVASTATIN
     Route: 065
     Dates: start: 20160624
  9. CLOPIDOGREL [Concomitant]
     Active Substance: CLOPIDOGREL BISULFATE
     Route: 065
     Dates: start: 20161228
  10. OMEPRAZOLE. [Concomitant]
     Active Substance: OMEPRAZOLE
     Route: 065
     Dates: start: 20080201
  11. HYPROMELLOSE [Concomitant]
     Active Substance: HYPROMELLOSES
     Route: 065
     Dates: start: 20160418

REACTIONS (3)
  - Papillary cystadenoma lymphomatosum [Unknown]
  - Transient ischaemic attack [Recovered/Resolved]
  - Salivary gland neoplasm [Unknown]

NARRATIVE: CASE EVENT DATE: 20161209
